FAERS Safety Report 6957346-2 (Version None)
Quarter: 2010Q3

REPORT INFORMATION
  Report Type: 
  Country: None (occurrence: None)
  Receive Date: 20100831
  Receipt Date: 20100819
  Transmission Date: 20110219
  Serious: Yes (Hospitalization)
  Sender: FDA-Public Use
  Company Number: JP-BAYER-201014227BYL

PATIENT
  Age: 26 Year
  Sex: Male
  Weight: 60 kg

DRUGS (2)
  1. BETAFERON [Suspect]
     Indication: MULTIPLE SCLEROSIS
     Dosage: TOTAL DAILY DOSE: 8 MIU
     Route: 058
  2. ADRENAL HORMONE PREPARATIONS [Concomitant]
     Indication: MULTIPLE SCLEROSIS
     Route: 042

REACTIONS (1)
  - HISTIOCYTOSIS HAEMATOPHAGIC [None]
